FAERS Safety Report 9638725 (Version 2)
Quarter: 2013Q4

REPORT INFORMATION
  Report Type: Spontaneous
  Country: US (occurrence: US)
  Receive Date: 20131022
  Receipt Date: 20131022
  Transmission Date: 20140711
  Serious: No
  Sender: FDA-Public Use
  Company Number: US-BRISTOL-MYERS SQUIBB COMPANY-19241728

PATIENT
  Age: 65 Year
  Sex: Female

DRUGS (7)
  1. ELIQUIS [Suspect]
     Indication: ATRIAL FIBRILLATION
     Route: 048
     Dates: start: 20130730, end: 20130819
  2. AMIODARONE HCL [Suspect]
     Route: 048
  3. LEVOTHYROXINE [Concomitant]
  4. SINGULAIR [Concomitant]
  5. VESICARE [Concomitant]
  6. HYDROCHLOROTHIAZIDE [Concomitant]
  7. VENTOLIN INHALER [Concomitant]

REACTIONS (1)
  - Hypersensitivity [Recovered/Resolved]
